FAERS Safety Report 16290941 (Version 6)
Quarter: 2020Q1

REPORT INFORMATION
  Report Type: Report from Study
  Country: GT (occurrence: GT)
  Receive Date: 20190509
  Receipt Date: 20200325
  Transmission Date: 20200409
  Serious: Yes (Other)
  Sender: FDA-Public Use
  Company Number: PHHY2019GT046635

PATIENT
  Age: 39 Year
  Sex: Male
  Weight: 72.57 kg

DRUGS (9)
  1. IMODIUM [Concomitant]
     Active Substance: LOPERAMIDE HYDROCHLORIDE
     Indication: PRODUCT USED FOR UNKNOWN INDICATION
     Route: 065
  2. TEGRETOL [Suspect]
     Active Substance: CARBAMAZEPINE
     Dosage: 300 MG, UNK
     Route: 065
  3. GABAPENTIN. [Concomitant]
     Active Substance: GABAPENTIN
     Indication: PRODUCT USED FOR UNKNOWN INDICATION
     Dosage: 300 MG, QD
     Route: 048
  4. TEGRETOL [Suspect]
     Active Substance: CARBAMAZEPINE
     Dosage: 200 MG, (EVERY 8 HOURS) UNK
     Route: 065
  5. ALPRAZOLAMS [Concomitant]
     Indication: PRODUCT USED FOR UNKNOWN INDICATION
     Dosage: 0.5 DF (BEFORE BED), UNK
     Route: 065
  6. TEGRETOL [Suspect]
     Active Substance: CARBAMAZEPINE
     Indication: PRODUCT USED FOR UNKNOWN INDICATION
     Dosage: 100 MG, TID
     Route: 048
  7. EUTIROX [Concomitant]
     Active Substance: LEVOTHYROXINE SODIUM
     Indication: PRODUCT USED FOR UNKNOWN INDICATION
     Dosage: 50 UG, QD
     Route: 048
  8. BIOTIN [Concomitant]
     Active Substance: BIOTIN
     Indication: BIOTINIDASE DEFICIENCY
     Dosage: 1 DF, QD
     Route: 065
  9. GILENYA [Suspect]
     Active Substance: FINGOLIMOD HYDROCHLORIDE
     Indication: MULTIPLE SCLEROSIS
     Dosage: 0.5 MG
     Route: 048
     Dates: start: 20190221

REACTIONS (39)
  - Multiple sclerosis [Unknown]
  - Bone pain [Unknown]
  - Gamma-glutamyltransferase abnormal [Unknown]
  - Fatigue [Unknown]
  - Tremor [Unknown]
  - Hepatic function abnormal [Unknown]
  - Transaminases increased [Unknown]
  - Aspartate aminotransferase increased [Unknown]
  - Nervousness [Unknown]
  - Transaminases abnormal [Unknown]
  - Gamma-glutamyltransferase increased [Unknown]
  - Very low density lipoprotein increased [Unknown]
  - Blood cholesterol increased [Unknown]
  - Immunosuppression [Unknown]
  - Low density lipoprotein increased [Unknown]
  - Anxiety [Unknown]
  - Stress [Unknown]
  - Middle insomnia [Unknown]
  - Weight increased [Recovering/Resolving]
  - Dizziness [Unknown]
  - Periorbital swelling [Unknown]
  - Spinal pain [Unknown]
  - Abdominal pain upper [Unknown]
  - Decreased appetite [Unknown]
  - Myalgia [Unknown]
  - Dyspnoea [Unknown]
  - Viral infection [Unknown]
  - Blood triglycerides increased [Unknown]
  - Pyrexia [Recovering/Resolving]
  - Dehydration [Unknown]
  - Memory impairment [Unknown]
  - Blood pressure abnormal [Unknown]
  - Hypertension [Recovering/Resolving]
  - Musculoskeletal chest pain [Unknown]
  - Pain in extremity [Unknown]
  - Nausea [Recovering/Resolving]
  - Diarrhoea [Unknown]
  - Alanine aminotransferase increased [Unknown]
  - Glycosylated haemoglobin increased [Unknown]

NARRATIVE: CASE EVENT DATE: 20190709
